FAERS Safety Report 7799729 (Version 3)
Quarter: 2014Q3

REPORT INFORMATION
  Report Type: Spontaneous
  Country: US (occurrence: US)
  Receive Date: 20110204
  Receipt Date: 20140702
  Transmission Date: 20150326
  Serious: Yes (Hospitalization, Other)
  Sender: FDA-Public Use
  Company Number: US-BAYER-2011-008811

PATIENT
  Age: 43 Year
  Sex: Female

DRUGS (1)
  1. MIRENA [Suspect]
     Active Substance: LEVONORGESTREL
     Indication: OVARIAN CYST
     Dosage: 20 ?G/D, CONT
     Route: 015
     Dates: start: 201002

REACTIONS (10)
  - Cervix carcinoma [None]
  - Papilloma viral infection [None]
  - Aphonia [None]
  - Off label use [None]
  - Facial pain [None]
  - Head discomfort [None]
  - Smear cervix abnormal [None]
  - Lymphadenectomy [None]
  - VIIth nerve paralysis [None]
  - Migraine [None]

NARRATIVE: CASE EVENT DATE: 2010
